FAERS Safety Report 8806608 (Version 2)
Quarter: 2012Q4

REPORT INFORMATION
  Report Type: 
  Country: TR (occurrence: TR)
  Receive Date: 20120925
  Receipt Date: 20121005
  Transmission Date: 20130627
  Serious: Yes (Death, Hospitalization, Other)
  Sender: FDA-Public Use
  Company Number: TR-RANBAXY-2012RR-60438

PATIENT
  Age: 19 Year
  Sex: Female

DRUGS (2)
  1. VALPROIC ACID [Suspect]
     Indication: CHOREA
     Dosage: 500 mg, bid
     Route: 065
     Dates: start: 20090622
  2. DOXYCYCLINE HYDROCHLORIDE [Suspect]
     Indication: BRUCELLOSIS
     Dosage: 1 DF, bid
     Route: 065

REACTIONS (8)
  - Drug reaction with eosinophilia and systemic symptoms [Fatal]
  - Acute tonsillitis [Unknown]
  - Encephalopathy [None]
  - Metabolic acidosis [None]
  - Pleural effusion [None]
  - Haemoglobin decreased [None]
  - Staphylococcal infection [None]
  - General physical health deterioration [None]
